FAERS Safety Report 6491777-2 (Version None)
Quarter: 2009Q4

REPORT INFORMATION
  Report Type: 
  Country: None (occurrence: None)
  Receive Date: 20091210
  Receipt Date: 20091118
  Transmission Date: 20100525
  Serious: Yes (Other)
  Sender: FDA-Public Use
  Company Number: E-09-451

PATIENT
  Age: 42 Year
  Sex: Female

DRUGS (6)
  1. OXYCODONE HCL [Suspect]
     Indication: PROCEDURAL PAIN
     Dosage: 5 MG; 4 HOURS; ORAL
     Route: 048
     Dates: start: 20090422, end: 20090426
  2. ENOXAPARIN SODIUM [Concomitant]
  3. CONTRAST MEDIA [Concomitant]
  4. PARACETAMOL [Concomitant]
  5. VANCOMYCIN [Concomitant]
  6. HYDROMORPHONE HCL [Concomitant]

REACTIONS (8)
  - ALANINE AMINOTRANSFERASE INCREASED [None]
  - ASPARTATE AMINOTRANSFERASE INCREASED [None]
  - EOSINOPHIL COUNT INCREASED [None]
  - H1N1 INFLUENZA [None]
  - MONOCYTE COUNT INCREASED [None]
  - POST PROCEDURAL INFECTION [None]
  - RASH GENERALISED [None]
  - WHITE BLOOD CELL COUNT DECREASED [None]
